FAERS Safety Report 9887785 (Version 1)
Quarter: 2014Q1

REPORT INFORMATION
  Report Type: Spontaneous
  Country: US (occurrence: None)
  Receive Date: 20140207
  Receipt Date: 20140207
  Transmission Date: 20141002
  Serious: Yes (Hospitalization)
  Sender: FDA-Public Use
  Company Number: None

PATIENT
  Age: 78 None
  Sex: Male
  Weight: 86.5 kg

DRUGS (1)
  1. GLIPIZIDE [Suspect]
     Indication: DIABETES MELLITUS
     Route: 048
     Dates: start: 19970311, end: 20100624

REACTIONS (4)
  - Confusional state [None]
  - Hypoglycaemia [None]
  - Hyperhidrosis [None]
  - Hypotension [None]
